FAERS Safety Report 9271833 (Version 1)
Quarter: 2013Q2

REPORT INFORMATION
  Report Type: Report from Study
  Country: CA (occurrence: CA)
  Receive Date: 20130506
  Receipt Date: 20130506
  Transmission Date: 20140414
  Serious: Yes (Other)
  Sender: FDA-Public Use
  Company Number: CA-JNJFOC-20130417295

PATIENT
  Age: 53 Year
  Sex: Female
  Weight: 104.33 kg

DRUGS (1)
  1. STELARA [Suspect]
     Indication: PSORIASIS
     Route: 058
     Dates: start: 20130410

REACTIONS (2)
  - Tendonitis [Not Recovered/Not Resolved]
  - Pain [Not Recovered/Not Resolved]
